FAERS Safety Report 11051417 (Version 2)
Quarter: 2015Q3

REPORT INFORMATION
  Report Type: Spontaneous
  Country: CH (occurrence: CH)
  Receive Date: 20150421
  Receipt Date: 20150709
  Transmission Date: 20151125
  Serious: Yes (Death, Other)
  Sender: FDA-Public Use
  Company Number: CH-CELGENE-CHE-2015042984

PATIENT

DRUGS (1)
  1. REVLIMID [Suspect]
     Active Substance: LENALIDOMIDE
     Indication: PLASMA CELL MYELOMA
     Route: 048

REACTIONS (32)
  - Infection [Unknown]
  - Sepsis [Fatal]
  - Neutropenia [Unknown]
  - Skin reaction [Unknown]
  - Hypokalaemia [Unknown]
  - Plasma cell leukaemia [Unknown]
  - Pneumonia [Unknown]
  - Fatigue [Unknown]
  - Venous thrombosis [Unknown]
  - Leukopenia [Unknown]
  - Vomiting [Unknown]
  - Fracture [Unknown]
  - Dehydration [Unknown]
  - Dyspepsia [Unknown]
  - Anaemia [Unknown]
  - Lung infection [Unknown]
  - Rash pruritic [Unknown]
  - Diarrhoea [Unknown]
  - Cardiac disorder [Unknown]
  - Angina unstable [Unknown]
  - Impaired gastric emptying [Unknown]
  - Plasma cell myeloma [Fatal]
  - Epilepsy [Unknown]
  - Febrile neutropenia [Unknown]
  - Presyncope [Unknown]
  - Thrombocytopenia [Unknown]
  - Interstitial lung disease [Unknown]
  - Pyrexia [Unknown]
  - Rash [Unknown]
  - Nausea [Unknown]
  - Hepatic enzyme increased [Unknown]
  - Hyperglycaemia [Unknown]
